FAERS Safety Report 5831886-1 (Version None)
Quarter: 2008Q3

REPORT INFORMATION
  Report Type: 
  Country: None (occurrence: None)
  Receive Date: 20080804
  Receipt Date: 20080725
  Transmission Date: 20090109
  Serious: Yes (Life-Threatening, Hospitalization)
  Sender: FDA-Public Use
  Company Number: DE-AMGEN-US275870

PATIENT
  Sex: Male
  Weight: 98.4 kg

DRUGS (5)
  1. ENBREL [Suspect]
     Indication: RHEUMATOID ARTHRITIS
     Dosage: 50 MG EVERY 1 TOT
     Route: 058
     Dates: start: 20080414, end: 20080414
  2. LANTAREL [Suspect]
     Dosage: 10 MG (FREQUENCY UNKNOWN)
     Route: 065
  3. ARCOXIA [Suspect]
     Dosage: 60 MG (FREQUENCY UNKNOWN)
     Route: 048
  4. ORAL ANTICOAGULANT NOS [Concomitant]
     Route: 065
  5. CORTISONE [Concomitant]
     Route: 065

REACTIONS (12)
  - ABDOMINAL DISTENSION [None]
  - ARRHYTHMIA [None]
  - ASTHENIA [None]
  - CHEST PAIN [None]
  - CHILLS [None]
  - CONDITION AGGRAVATED [None]
  - DECREASED APPETITE [None]
  - DIARRHOEA [None]
  - FALL [None]
  - HYPOAESTHESIA [None]
  - NAUSEA [None]
  - PNEUMONIA [None]
